FAERS Safety Report 24361897 (Version 1)
Quarter: 2024Q3

REPORT INFORMATION
  Report Type: Spontaneous
  Country: US (occurrence: None)
  Receive Date: 20240925
  Receipt Date: 20240925
  Transmission Date: 20241017
  Serious: Yes (Death)
  Sender: Public
  Company Number: None

PATIENT
  Age: 69 Year
  Sex: Female

DRUGS (1)
  1. LECANEMAB [Suspect]
     Active Substance: LECANEMAB

REACTIONS (5)
  - Cerebral haemorrhage [None]
  - Amyloid related imaging abnormality-oedema/effusion [None]
  - Therapy interrupted [None]
  - Oedema [None]
  - Cerebral mass effect [None]
